FAERS Safety Report 9448468 (Version 1)
Quarter: 2013Q3

REPORT INFORMATION
  Report Type: Not Available
  Country: US (occurrence: US)
  Receive Date: 20130808
  Receipt Date: 20130808
  Transmission Date: 20140515
  Serious: No
  Sender: FDA-Public Use
  Company Number: US-TARO-2012P1055863

PATIENT
  Age: 68 Year
  Sex: Male

DRUGS (5)
  1. KETOCONAZOLE [Suspect]
  2. KETOCONAZOLE [Suspect]
     Dates: start: 201207, end: 201207
  3. PROVENGE (SIPULEUCEL-T) SUSPENSION [Suspect]
     Indication: PROSTATE CANCER METASTATIC
     Route: 042
     Dates: start: 20120608, end: 20120608
  4. PROVENGE (SIPULEUCEL-T) SUSPENSION [Suspect]
     Indication: PROSTATE CANCER METASTATIC
     Route: 042
     Dates: start: 20120622, end: 20120622
  5. PROVENGE (SIPULEUCEL-T) SUSPENSION [Suspect]
     Indication: PROSTATE CANCER METASTATIC
     Route: 042
     Dates: start: 20120713, end: 20120713

REACTIONS (2)
  - Oedema peripheral [Recovering/Resolving]
  - Flushing [Recovering/Resolving]
